FAERS Safety Report 9248739 (Version 1)
Quarter: 2013Q2

REPORT INFORMATION
  Report Type: Spontaneous
  Country: US (occurrence: None)
  Receive Date: 20130419
  Receipt Date: 20130419
  Transmission Date: 20140414
  Serious: Yes (Hospitalization)
  Sender: FDA-Public Use
  Company Number: None

PATIENT
  Age: 55 Year
  Sex: Female

DRUGS (1)
  1. ENBREL SURECLICK 50MG/ML 4/PK [Suspect]
     Route: 058
     Dates: start: 20111113, end: 20130401

REACTIONS (3)
  - Respiratory distress [None]
  - Pericarditis [None]
  - Lupus-like syndrome [None]
